FAERS Safety Report 8462504-4 (Version None)
Quarter: 2012Q2

REPORT INFORMATION
  Report Type: 
  Country: None (occurrence: None)
  Receive Date: 20120625
  Receipt Date: 20120619
  Transmission Date: 20120825
  Serious: Yes (Hospitalization)
  Sender: FDA-Public Use
  Company Number: PHEH2012US012237

PATIENT
  Sex: Female

DRUGS (2)
  1. RECLAST [Suspect]
     Dosage: 5 MG, UNK
     Route: 042
     Dates: start: 20120618
  2. RECLAST [Suspect]
     Dosage: 5 MG, UNK
     Route: 042

REACTIONS (7)
  - NAUSEA [None]
  - CEREBROVASCULAR ACCIDENT [None]
  - SOMNOLENCE [None]
  - HYPERGLYCAEMIA [None]
  - INCOHERENT [None]
  - CONVULSION [None]
  - MALAISE [None]
